FAERS Safety Report 8507383-1 (Version None)
Quarter: 2012Q3

REPORT INFORMATION
  Report Type: 
  Country: None (occurrence: None)
  Receive Date: 20120712
  Receipt Date: 20120711
  Transmission Date: 20120928
  Serious: Yes (Other)
  Sender: FDA-Public Use
  Company Number: ES-BAYER-2012-069174

PATIENT
  Sex: Male

DRUGS (1)
  1. MOXIFLOXACIN [Suspect]
     Indication: ANTIBIOTIC PROPHYLAXIS

REACTIONS (2)
  - FLUSHING [None]
  - PRURITUS GENERALISED [None]
